FAERS Safety Report 7593724-9 (Version None)
Quarter: 2011Q3

REPORT INFORMATION
  Report Type: 
  Country: None (occurrence: None)
  Receive Date: 20110706
  Receipt Date: 20110622
  Transmission Date: 20111222
  Serious: Yes (Hospitalization)
  Sender: FDA-Public Use
  Company Number: PHHY2011FR45257

PATIENT
  Sex: Male
  Weight: 95 kg

DRUGS (5)
  1. BISOPROLOL FUMARATE [Suspect]
     Indication: CARDIOMYOPATHY
  2. BISOPROLOL FUMARATE [Suspect]
     Indication: HYPERTENSION
     Dosage: 12.5 MG, UNK
  3. RIVASTIGMINE [Suspect]
     Indication: DEMENTIA ALZHEIMER'S TYPE
     Dosage: 4.6 MG, UNK
     Route: 062
     Dates: start: 20100903
  4. VALSARTAN AND HYDROCHLOROTHIAZIDE [Suspect]
     Indication: HYPERTENSION
     Dosage: 160 MG, UNK
  5. AMLODIPINE [Suspect]
     Indication: HYPERTENSION

REACTIONS (3)
  - FATIGUE [None]
  - HYPOTENSION [None]
  - BRADYCARDIA [None]
